FAERS Safety Report 9029673 (Version 3)
Quarter: 2013Q1

REPORT INFORMATION
  Report Type: Spontaneous
  Country: US (occurrence: US)
  Receive Date: 20130125
  Receipt Date: 20130220
  Transmission Date: 20140127
  Serious: Yes (Other)
  Sender: FDA-Public Use
  Company Number: US-SANOFI-AVENTIS-2013SA004848

PATIENT
  Age: 43 Year
  Sex: Female

DRUGS (5)
  1. LANTUS [Suspect]
     Indication: DIABETES MELLITUS
     Dosage: DOSE:35 UNIT(S)
     Route: 058
     Dates: start: 2003
  2. HUMULIN R [Suspect]
     Indication: DIABETES MELLITUS
     Dosage: SLIDING SCALE
     Route: 065
  3. ZOLPIDEM [Concomitant]
     Indication: SLEEP DISORDER
  4. LOVASTATIN [Concomitant]
     Indication: BLOOD CHOLESTEROL
  5. FENOFIBRATE [Concomitant]
     Indication: BLOOD CHOLESTEROL

REACTIONS (4)
  - Injection site infection [Unknown]
  - Nodule [Unknown]
  - Erythema [Unknown]
  - Injection site pain [Unknown]
